FAERS Safety Report 6836953-1 (Version None)
Quarter: 2010Q3

REPORT INFORMATION
  Report Type: 
  Country: None (occurrence: None)
  Receive Date: 20100713
  Receipt Date: 20070502
  Transmission Date: 20110219
  Serious: No
  Sender: FDA-Public Use
  Company Number: US-PFIZER INC-2007036203

PATIENT
  Sex: Female
  Weight: 77.272 kg

DRUGS (3)
  1. CHANTIX [Suspect]
     Indication: SMOKING CESSATION THERAPY
     Dates: start: 20070429
  2. SYNTHROID [Concomitant]
     Indication: THYROID DISORDER
  3. CLARITIN [Concomitant]

REACTIONS (2)
  - FOOD CRAVING [None]
  - IRRITABILITY [None]
